FAERS Safety Report 6577720-6 (Version None)
Quarter: 2010Q1

REPORT INFORMATION
  Report Type: 
  Country: None (occurrence: None)
  Receive Date: 20100211
  Receipt Date: 20100209
  Transmission Date: 20100710
  Serious: Yes (Hospitalization)
  Sender: FDA-Public Use
  Company Number: JP-BAYER-200914695BYL

PATIENT
  Age: 68 Year
  Sex: Male
  Weight: 46 kg

DRUGS (10)
  1. NEXAVAR [Suspect]
     Indication: HEPATIC NEOPLASM MALIGNANT
     Dosage: TOTAL DAILY DOSE: 800 MG  UNIT DOSE: 200 MG
     Route: 048
     Dates: start: 20091109, end: 20091204
  2. NEXAVAR [Suspect]
     Dosage: UNIT DOSE: 200 MG
     Route: 048
     Dates: start: 20091228, end: 20100102
  3. NEXAVAR [Suspect]
     Dosage: UNIT DOSE: 200 MG
     Route: 048
     Dates: start: 20100103
  4. LANTUS [Concomitant]
     Indication: DIABETES MELLITUS
     Route: 058
  5. LASIX [Concomitant]
     Indication: ASCITES
     Dosage: UNIT DOSE: 40 MG
     Route: 048
     Dates: end: 20091204
  6. AMLODIN OD [Concomitant]
     Indication: HYPERTENSION
     Dosage: UNIT DOSE: 5 MG
     Route: 048
     Dates: end: 20091204
  7. ASPIRIN [Concomitant]
     Indication: ANGINA PECTORIS
     Dosage: UNIT DOSE: 100 MG
     Route: 048
     Dates: end: 20091204
  8. DILTIAZEM HYDROCHLORIDE [Concomitant]
     Indication: ANGINA PECTORIS
     Dosage: UNIT DOSE: 100 MG
     Route: 048
     Dates: end: 20091204
  9. LENDORMIN D [Concomitant]
     Indication: INSOMNIA
     Dosage: UNIT DOSE: 0.25 MG
     Route: 048
     Dates: end: 20091204
  10. FRANDOL TAPE [Concomitant]
     Indication: ANGINA PECTORIS
     Dosage: UNIT DOSE: 40 MG
     Route: 062

REACTIONS (6)
  - EPISTAXIS [None]
  - HAEMATEMESIS [None]
  - HYPERAMMONAEMIA [None]
  - OESOPHAGEAL VARICES HAEMORRHAGE [None]
  - PYREXIA [None]
  - RASH [None]
